FAERS Safety Report 7995669-9 (Version None)
Quarter: 2011Q4

REPORT INFORMATION
  Report Type: 
  Country: None (occurrence: None)
  Receive Date: 20111220
  Receipt Date: 20111209
  Transmission Date: 20120403
  Serious: Yes (Hospitalization, Other)
  Sender: FDA-Public Use
  Company Number: US-BAYER-2011-036219

PATIENT
  Age: 24 Year
  Sex: Female
  Weight: 82.54 kg

DRUGS (6)
  1. CIPROFLOXACIN [Concomitant]
     Indication: INFECTION
     Dosage: 750 MG, BID
     Route: 048
     Dates: start: 20060831
  2. YASMIN [Suspect]
     Indication: CONTRACEPTION
     Dosage: UNK
     Dates: start: 20060811, end: 20060912
  3. AMNESTEEM [Concomitant]
     Indication: ACNE CYSTIC
     Dosage: 40 MG, BID
     Route: 048
     Dates: start: 20060324, end: 20060912
  4. YASMIN [Suspect]
     Indication: ACNE
  5. CLARAVIS [Concomitant]
     Indication: ACNE CYSTIC
     Dosage: 40 MG, BID
     Route: 048
     Dates: start: 20060324, end: 20060912
  6. ACCUTANE [Concomitant]
     Indication: ACNE CYSTIC
     Dosage: 40 MG, BID
     Route: 048
     Dates: start: 20060324, end: 20060912

REACTIONS (17)
  - ABORTION SPONTANEOUS [None]
  - CHEST PAIN [None]
  - THROMBOSIS [None]
  - PULMONARY INFARCTION [None]
  - PULMONARY EMBOLISM [None]
  - PAIN [None]
  - DYSPNOEA [None]
  - MUSCLE SWELLING [None]
  - INJURY [None]
  - GENERAL PHYSICAL HEALTH DETERIORATION [None]
  - ANXIETY [None]
  - OEDEMA PERIPHERAL [None]
  - THROMBOPHLEBITIS SUPERFICIAL [None]
  - PAIN IN EXTREMITY [None]
  - DEEP VEIN THROMBOSIS [None]
  - EMOTIONAL DISTRESS [None]
  - FEAR [None]
